FAERS Safety Report 18743718 (Version 1)
Quarter: 2021Q1

REPORT INFORMATION
  Report Type: Spontaneous
  Country: GR (occurrence: GR)
  Receive Date: 20210115
  Receipt Date: 20210115
  Transmission Date: 20210419
  Serious: Yes (Other)
  Sender: FDA-Public Use
  Company Number: GR-JNJFOC-20201211789

PATIENT
  Age: 6 Decade
  Sex: Female

DRUGS (2)
  1. AZATHIOPRINE. [Concomitant]
     Active Substance: AZATHIOPRINE
  2. REMICADE [Suspect]
     Active Substance: INFLIXIMAB
     Indication: COLITIS ULCERATIVE
     Dosage: 5MG/KG/8WEEKS FOR 1,5?2 YEARS AS TREATMENT FOR ULCERATIVE COLITIS
     Route: 042

REACTIONS (2)
  - Herpes zoster [Recovering/Resolving]
  - Oral herpes [Recovering/Resolving]
